FAERS Safety Report 8826426 (Version 1)
Quarter: 2012Q4

REPORT INFORMATION
  Report Type: 
  Country: US (occurrence: US)
  Receive Date: 20121008
  Receipt Date: 20121008
  Transmission Date: 20130627
  Serious: Yes (Death)
  Sender: FDA-Public Use
  Company Number: US-ASTRAZENECA-2012SE75606

PATIENT
  Sex: Male

DRUGS (4)
  1. SEROQUEL XR [Suspect]
     Indication: DEMENTIA
     Route: 048
  2. SEROQUEL XR [Suspect]
     Indication: DELIRIUM
     Route: 048
  3. SEROQUEL XR [Suspect]
     Indication: DELUSION
     Route: 048
  4. SEROQUEL XR [Suspect]
     Indication: AGGRESSION
     Route: 048

REACTIONS (2)
  - Death [Fatal]
  - Off label use [Unknown]
